FAERS Safety Report 18003125 (Version 1)
Quarter: 2020Q3

REPORT INFORMATION
  Report Type: Spontaneous
  Country: US (occurrence: US)
  Receive Date: 20200710
  Receipt Date: 20200710
  Transmission Date: 20201103
  Serious: Yes (Hospitalization, Other)
  Sender: FDA-Public Use
  Company Number: US-LUPIN PHARMACEUTICALS INC.-2020-03116

PATIENT
  Age: 16 Year
  Sex: Male

DRUGS (2)
  1. OXYCODONE [Suspect]
     Active Substance: OXYCODONE
     Indication: PRODUCT USED FOR UNKNOWN INDICATION
     Dosage: 3?4 (10?325 MG PILLS) LACED WITH FENTANYL
     Route: 048
  2. FENTANYL. [Suspect]
     Active Substance: FENTANYL
     Indication: PRODUCT USED FOR UNKNOWN INDICATION
     Dosage: 3?4 (10?325 MG PILLS) LACED WITH FENTANYL
     Route: 048

REACTIONS (6)
  - Neurodegenerative disorder [Recovering/Resolving]
  - Product counterfeit [Unknown]
  - Product contamination [Unknown]
  - Overdose [Unknown]
  - Counterfeit product administered [Unknown]
  - White matter lesion [Recovering/Resolving]
